FAERS Safety Report 8947908 (Version 1)
Quarter: 2012Q4

REPORT INFORMATION
  Report Type: 
  Country: US (occurrence: US)
  Receive Date: 20121204
  Receipt Date: 20121204
  Transmission Date: 20130627
  Serious: No
  Sender: FDA-Public Use
  Company Number: US-ASTRAZENECA-2012SE88148

PATIENT
  Age: 62 Year
  Sex: Female
  Weight: 90.7 kg

DRUGS (8)
  1. SYMBICORT PMDI [Suspect]
     Indication: ASTHMA
     Dosage: 1 PUFF BID
     Route: 055
     Dates: start: 20121101
  2. SYMBICORT PMDI [Suspect]
     Indication: CHRONIC OBSTRUCTIVE PULMONARY DISEASE
     Dosage: 1 PUFF BID
     Route: 055
     Dates: start: 20121101
  3. LISINOPRIL/HCTZ [Suspect]
     Indication: HYPERTENSION
     Dosage: 20/12.5 daily
     Route: 048
  4. LOVASTATIN [Concomitant]
     Indication: BLOOD CHOLESTEROL ABNORMAL
  5. PLAVIX [Concomitant]
     Indication: OCULAR ISCHAEMIC SYNDROME
  6. COMBIVENT [Concomitant]
     Indication: ASTHMA
  7. COMBIVENT [Concomitant]
     Indication: CHRONIC OBSTRUCTIVE PULMONARY DISEASE
  8. PROVENTIL [Concomitant]
     Indication: PROPHYLAXIS AGAINST BRONCHOSPASM

REACTIONS (3)
  - Dysgeusia [Unknown]
  - Dysphonia [Unknown]
  - Nausea [Unknown]
